FAERS Safety Report 5484996-5 (Version None)
Quarter: 2007Q4

REPORT INFORMATION
  Report Type: 
  Country: None (occurrence: None)
  Receive Date: 20071013
  Receipt Date: 20071001
  Transmission Date: 20080405
  Serious: Yes (Hospitalization)
  Sender: FDA-Public Use
  Company Number: DE-BRACCO-BRO-012183

PATIENT
  Age: 70 Year
  Sex: Female
  Weight: 79.5 kg

DRUGS (9)
  1. GADOTERIDOL [Suspect]
     Route: 042
  2. GADOTERIDOL [Suspect]
     Route: 042
  3. GADOTERIDOL [Suspect]
     Indication: MAGNETIC RESONANCE CHOLANGIOPANCREATOGRAPHY
     Route: 042
  4. METOPROLOL [Concomitant]
     Route: 050
  5. ACETYLSALYCYLIC ACID [Concomitant]
     Route: 050
  6. ATORVASTATIN CALCIUM [Concomitant]
     Route: 050
  7. METFORMIN [Concomitant]
     Route: 050
  8. TRIAMTERENE [Concomitant]
     Route: 048
  9. HYDROCHLOROTHIAZIDE [Concomitant]
     Route: 050

REACTIONS (1)
  - RENAL FAILURE ACUTE [None]
